FAERS Safety Report 7800698-1 (Version None)
Quarter: 2011Q4

REPORT INFORMATION
  Report Type: 
  Country: None (occurrence: None)
  Receive Date: 20111006
  Receipt Date: 20110929
  Transmission Date: 20120403
  Serious: Yes (Hospitalization, Other)
  Sender: FDA-Public Use
  Company Number: CA-UCBSA-042399

PATIENT
  Age: 69 Year
  Sex: Female
  Weight: 45.8 kg

DRUGS (11)
  1. COUMADIN [Concomitant]
     Indication: ANTICOAGULANT THERAPY
  2. AMIODARONE HCL [Concomitant]
     Indication: ARRHYTHMIA
  3. POTASSIUM CHLORIDE [Concomitant]
     Indication: HYPOKALAEMIA
     Dosage: LIQUID
  4. CIMZIA [Suspect]
     Indication: RHEUMATOID ARTHRITIS
     Route: 058
     Dates: start: 20110915
  5. VALSARTAN [Concomitant]
     Indication: HYPERTENSION
  6. CIMZIA [Suspect]
     Route: 058
     Dates: start: 20110804, end: 20110901
  7. FUROSEMIDE [Concomitant]
     Indication: DIURETIC THERAPY
  8. DIGOXIN [Concomitant]
     Indication: CARDIAC DISORDER
  9. METOPROLOL TARTRATE [Concomitant]
     Indication: HYPERTENSION
  10. SYMBICORT [Concomitant]
     Indication: RESPIRATORY DISORDER
     Dosage: PUFFER
  11. SPIRIVA [Concomitant]
     Indication: RESPIRATORY DISORDER

REACTIONS (1)
  - EPISTAXIS [None]
